FAERS Safety Report 5939905-9 (Version None)
Quarter: 2008Q4

REPORT INFORMATION
  Report Type: 
  Country: None (occurrence: None)
  Receive Date: 20081030
  Receipt Date: 20081030
  Transmission Date: 20090506
  Serious: Yes (Hospitalization)
  Sender: FDA-Public Use
  Company Number: None

PATIENT

DRUGS (1)
  1. GOSERELIN ACETATE [Suspect]
     Indication: PROSTATE CANCER
     Dosage: 10.8 MG OTHER SQ
     Route: 058
     Dates: start: 20070718, end: 20080128

REACTIONS (9)
  - AGGRESSION [None]
  - CONDITION AGGRAVATED [None]
  - DELUSION [None]
  - DISTURBANCE IN ATTENTION [None]
  - IRRITABILITY [None]
  - MANIA [None]
  - POOR QUALITY SLEEP [None]
  - SCHIZOAFFECTIVE DISORDER [None]
  - SPEECH DISORDER [None]
